FAERS Safety Report 9646430 (Version 1)
Quarter: 2013Q4

REPORT INFORMATION
  Report Type: Spontaneous
  Country: AU (occurrence: None)
  Receive Date: 20131024
  Receipt Date: 20131024
  Transmission Date: 20140711
  Serious: Yes (Hospitalization)
  Sender: FDA-Public Use
  Company Number: FK201304628

PATIENT
  Age: 32 Year
  Sex: Female

DRUGS (4)
  1. VALPROATE [Suspect]
     Indication: CONVULSION
  2. FLUOXETINE [Suspect]
     Indication: PRODUCT USED FOR UNKNOWN INDICATION
  3. ANTI-ASTHMATICS [Concomitant]
  4. PRAXITEN PLIVA (OXAZEPAM) (OXAZEPAM) [Concomitant]

REACTIONS (4)
  - Complex partial seizures [None]
  - Grand mal convulsion [None]
  - Postictal psychosis [None]
  - Urinary incontinence [None]
